FAERS Safety Report 9557874 (Version 3)
Quarter: 2013Q4

REPORT INFORMATION
  Report Type: Spontaneous
  Country: JP (occurrence: JP)
  Receive Date: 20130926
  Receipt Date: 20131205
  Transmission Date: 20140711
  Serious: Yes (Other)
  Sender: FDA-Public Use
  Company Number: JP-OTSUKA-JP-2013-14020

PATIENT
  Age: 74 Year
  Sex: Male
  Weight: 73 kg

DRUGS (11)
  1. SAMSCA [Suspect]
     Indication: CARDIAC FAILURE
     Dosage: 3.75 MG MILLIGRAM(S), QOD
     Route: 048
     Dates: start: 201303
  2. TAKEPRON [Suspect]
     Dosage: 15 MG MILLIGRAM(S), QD
     Route: 048
     Dates: start: 20111024
  3. BLOPRESS [Suspect]
     Dosage: 4 MG MILLIGRAM(S), QD
     Route: 048
     Dates: start: 20111024
  4. FUROSEMIDE [Suspect]
     Dosage: 20 MG MILLIGRAM(S), QD
     Route: 048
     Dates: start: 20111024
  5. LIPITOR [Suspect]
     Dosage: 10 MG MILLIGRAM(S), QD
     Route: 048
     Dates: start: 20111024
  6. ALESION [Suspect]
     Dosage: 20 MG MILLIGRAM(S), QD
     Route: 048
     Dates: start: 20111024
  7. AMBROXOL HYDROCHLORIDE [Suspect]
     Dosage: 45 MG MILLIGRAM(S), DAILY DOSE
     Route: 048
     Dates: start: 20120228
  8. SINGULAIR [Suspect]
     Dosage: UNK
     Route: 048
     Dates: start: 20130415
  9. MAGLAX [Concomitant]
     Dosage: 990 MG MILLIGRAM(S), DAILY DOSE
     Route: 048
     Dates: start: 20111024
  10. WARFARIN K [Concomitant]
     Dosage: 3.5 MG MILLIGRAM(S), QD
     Route: 048
     Dates: start: 20111024
  11. BIOFERMIN [Concomitant]
     Dosage: 3 DF DOSAGE FORM, DAILY DOSE
     Route: 048

REACTIONS (2)
  - Platelet count decreased [Unknown]
  - Anti-platelet antibody positive [Unknown]
